FAERS Safety Report 16230632 (Version 1)
Quarter: 2019Q2

REPORT INFORMATION
  Report Type: Report from Study
  Country: US (occurrence: US)
  Receive Date: 20190423
  Receipt Date: 20190423
  Transmission Date: 20190711
  Serious: Yes (Death, Hospitalization)
  Sender: FDA-Public Use
  Company Number: US-ACTELION-A-US2019-189150

PATIENT
  Sex: Male
  Weight: 68.93 kg

DRUGS (2)
  1. SILDENAFIL CITRATE. [Concomitant]
     Active Substance: SILDENAFIL CITRATE
  2. OPSUMIT [Suspect]
     Active Substance: MACITENTAN
     Indication: PULMONARY ARTERIAL HYPERTENSION
     Dosage: 10 MG, QD
     Route: 048

REACTIONS (7)
  - Pulmonary arterial hypertension [Fatal]
  - Pneumonia [Fatal]
  - Heart rate increased [Unknown]
  - Thrombosis [Fatal]
  - Endotracheal intubation [Unknown]
  - Restlessness [Unknown]
  - Dyspnoea [Unknown]
